FAERS Safety Report 11579086 (Version 1)
Quarter: 2015Q3

REPORT INFORMATION
  Report Type: Spontaneous
  Country: US (occurrence: US)
  Receive Date: 20150930
  Receipt Date: 20150930
  Transmission Date: 20151125
  Serious: Yes (Other)
  Sender: FDA-Public Use
  Company Number: US-ELI_LILLY_AND_COMPANY-US201509006836

PATIENT
  Sex: Female

DRUGS (16)
  1. HYDRALAZINE [Concomitant]
     Active Substance: HYDRALAZINE HYDROCHLORIDE
     Indication: HYPERTENSION
     Dosage: UNK, UNKNOWN
     Route: 065
  2. NIFEDIPINE. [Concomitant]
     Active Substance: NIFEDIPINE
     Dosage: 60 MG, BID
     Route: 065
  3. CALCIUM CARBONATE. [Concomitant]
     Active Substance: CALCIUM CARBONATE
     Dosage: UNK, UNKNOWN
     Route: 065
  4. CYMBALTA [Suspect]
     Active Substance: DULOXETINE HYDROCHLORIDE
     Indication: DEPRESSED MOOD
     Dosage: 30 MG, QD
     Route: 065
  5. ISOSORBIDE. [Concomitant]
     Active Substance: ISOSORBIDE
     Dosage: 40 MG, BID
     Route: 065
     Dates: start: 2014
  6. CYMBALTA [Suspect]
     Active Substance: DULOXETINE HYDROCHLORIDE
     Indication: CRYING
     Dosage: 60 MG, UNK
     Dates: start: 2009
  7. LEVOTHROID [Concomitant]
     Active Substance: LEVOTHYROXINE SODIUM
     Dosage: 125 MG, UNKNOWN
     Route: 065
  8. ISOSORBIDE. [Concomitant]
     Active Substance: ISOSORBIDE
     Indication: HYPERTENSION
     Dosage: UNK, UNKNOWN
     Route: 065
  9. OMEPRAZOLE. [Concomitant]
     Active Substance: OMEPRAZOLE
     Dosage: 20 MG, UNKNOWN
     Route: 065
  10. METOPROLOL [Concomitant]
     Active Substance: METOPROLOL
     Dosage: 125 MG, BID
     Route: 065
  11. VITAMIN D                          /00107901/ [Concomitant]
     Active Substance: ERGOCALCIFEROL
     Dosage: 2000 MG, UNKNOWN
     Route: 065
  12. METOPROLOL [Concomitant]
     Active Substance: METOPROLOL
     Dosage: 25 MG, IN THE MIDDLE OF THE DAY
     Route: 065
  13. ASPIRIN                            /00002701/ [Concomitant]
     Active Substance: ASPIRIN
     Dosage: 325 MG, UNKNOWN
     Route: 065
  14. VITAMIN C [Concomitant]
     Active Substance: ASCORBIC ACID
     Dosage: UNK, UNKNOWN
     Route: 065
  15. HYDRALAZINE [Concomitant]
     Active Substance: HYDRALAZINE HYDROCHLORIDE
     Dosage: 100 MG, TID
     Route: 065
     Dates: start: 2014
  16. RETINAVITES [Concomitant]
     Dosage: UNK, BID
     Route: 065

REACTIONS (4)
  - Hypertension [Unknown]
  - Creatinine renal clearance decreased [Not Recovered/Not Resolved]
  - Pleural effusion [Not Recovered/Not Resolved]
  - Skin discolouration [Not Recovered/Not Resolved]

NARRATIVE: CASE EVENT DATE: 2014
